FAERS Safety Report 18585746 (Version 1)
Quarter: 2020Q4

REPORT INFORMATION
  Report Type: Spontaneous
  Country: US (occurrence: US)
  Receive Date: 20201207
  Receipt Date: 20201207
  Transmission Date: 20210114
  Serious: No
  Sender: FDA-Public Use
  Company Number: US-BAYER-2020-265675

PATIENT

DRUGS (1)
  1. MIRALAX [Suspect]
     Active Substance: POLYETHYLENE GLYCOL 3350
     Dosage: HALF SCOOP
     Route: 048

REACTIONS (3)
  - Incorrect dose administered [Unknown]
  - Diarrhoea [Unknown]
  - Product prescribing issue [Unknown]
